FAERS Safety Report 13184713 (Version 1)
Quarter: 2017Q1

REPORT INFORMATION
  Report Type: Spontaneous
  Country: TR (occurrence: TR)
  Receive Date: 20170203
  Receipt Date: 20170203
  Transmission Date: 20170428
  Serious: Yes (Death, Hospitalization, Other)
  Sender: FDA-Public Use
  Company Number: TR-CELGENEUS-TUR-2017015038

PATIENT

DRUGS (2)
  1. REVLIMID [Suspect]
     Active Substance: LENALIDOMIDE
     Indication: PLASMA CELL MYELOMA
     Route: 048
  2. DEXAMETHASONE. [Concomitant]
     Active Substance: DEXAMETHASONE
     Indication: PLASMA CELL MYELOMA
     Route: 065

REACTIONS (12)
  - Cardiac failure [Fatal]
  - Hepatic failure [Unknown]
  - Pneumonia [Unknown]
  - Dysarthria [Fatal]
  - Pyrexia [Fatal]
  - Polyneuropathy [Unknown]
  - Rash [Unknown]
  - Deep vein thrombosis [Unknown]
  - Anaemia [Unknown]
  - Neutropenia [Unknown]
  - Thrombocytopenia [Unknown]
  - Plasma cell myeloma [Unknown]
